FAERS Safety Report 6148673-X (Version None)
Quarter: 2009Q2

REPORT INFORMATION
  Report Type: 
  Country: None (occurrence: None)
  Receive Date: 20090408
  Receipt Date: 20080128
  Transmission Date: 20091009
  Serious: Yes (Other)
  Sender: FDA-Public Use
  Company Number: BE-GENENTECH-280624

PATIENT

DRUGS (4)
  1. TRASTUZUMAB [Suspect]
     Indication: BREAST CANCER
     Dosage: 8 MG/KG, X1
     Route: 065
  2. TRASTUZUMAB [Suspect]
     Dosage: 6 MG/KG, Q21D
     Route: 065
  3. CAPECITABINE [Suspect]
     Indication: BREAST CANCER
     Dosage: 900 MG/M2, BID/D1-14/Q3W
     Route: 048
  4. DOCETAXEL [Suspect]
     Indication: BREAST CANCER
     Dosage: 36 MG/M2, UNK
     Route: 042

REACTIONS (8)
  - DIARRHOEA [None]
  - DISEASE PROGRESSION [None]
  - FEBRILE NEUTROPENIA [None]
  - NEUROPATHY PERIPHERAL [None]
  - PALMAR-PLANTAR ERYTHRODYSAESTHESIA SYNDROME [None]
  - RASH [None]
  - STOMATITIS [None]
  - VOMITING [None]
